FAERS Safety Report 13779186 (Version 1)
Quarter: 2017Q3

REPORT INFORMATION
  Report Type: Spontaneous
  Country: US (occurrence: US)
  Receive Date: 20170721
  Receipt Date: 20170721
  Transmission Date: 20171127
  Serious: Yes (Other)
  Sender: FDA-Public Use
  Company Number: US-SAGENT PHARMACEUTICALS-2017SAG000005

PATIENT

DRUGS (4)
  1. EPIRUBICIN [Concomitant]
     Active Substance: EPIRUBICIN
  2. LEUCOVORIN CALCIUM. [Suspect]
     Active Substance: LEUCOVORIN CALCIUM
  3. CISPLATIN. [Concomitant]
     Active Substance: CISPLATIN
  4. FLUOROURACIL. [Concomitant]
     Active Substance: FLUOROURACIL

REACTIONS (4)
  - Febrile neutropenia [Unknown]
  - Neuropathy peripheral [Unknown]
  - Mucosal inflammation [Unknown]
  - Palmar-plantar erythrodysaesthesia syndrome [Unknown]
